FAERS Safety Report 8502542-6 (Version None)
Quarter: 2012Q3

REPORT INFORMATION
  Report Type: 
  Country: None (occurrence: None)
  Receive Date: 20120711
  Receipt Date: 20120628
  Transmission Date: 20120928
  Serious: Yes (Other)
  Sender: FDA-Public Use
  Company Number: AU-ELI_LILLY_AND_COMPANY-AU201204007972

PATIENT
  Sex: Male
  Weight: 96 kg

DRUGS (1)
  1. ZYPREXA RELPREVV [Suspect]
     Indication: SCHIZOPHRENIA
     Dosage: 210 MG, FORTNIGHTLY

REACTIONS (9)
  - CYANOSIS [None]
  - RESTLESSNESS [None]
  - ABDOMINAL DISCOMFORT [None]
  - PRURITUS [None]
  - SEDATION [None]
  - HYPERHIDROSIS [None]
  - HYPOTENSION [None]
  - HYPERTENSION [None]
  - AGITATION [None]
